FAERS Safety Report 22119500 (Version 1)
Quarter: 2023Q1

REPORT INFORMATION
  Report Type: Spontaneous
  Country: US (occurrence: US)
  Receive Date: 20230321
  Receipt Date: 20230321
  Transmission Date: 20230417
  Serious: Yes (Life-Threatening, Hospitalization, Other)
  Sender: FDA-Public Use
  Company Number: US-PFIZER INC-PV202300051536

PATIENT
  Age: 24 Month
  Sex: Male

DRUGS (1)
  1. SOLU-MEDROL [Suspect]
     Active Substance: METHYLPREDNISOLONE SODIUM SUCCINATE
     Indication: Seizure
     Dosage: 10 MG
     Route: 042

REACTIONS (3)
  - Angioedema [Unknown]
  - Drug ineffective [Unknown]
  - Paralysis [Unknown]
